FAERS Safety Report 14061064 (Version 2)
Quarter: 2018Q2

REPORT INFORMATION
  Report Type: Spontaneous
  Country: DE (occurrence: DE)
  Receive Date: 20171008
  Receipt Date: 20180425
  Transmission Date: 20180711
  Serious: Yes (Other)
  Sender: FDA-Public Use
  Company Number: DE-TORRENT-00007175

PATIENT
  Age: 74 Year
  Sex: Female

DRUGS (4)
  1. LITHIUM. [Suspect]
     Active Substance: LITHIUM
     Indication: PROPHYLAXIS
     Dosage: DAILY DOSE: 900 MG MILLIGRAM(S) EVERY DAY
     Route: 048
  2. TOPIRAMATE. [Suspect]
     Active Substance: TOPIRAMATE
     Indication: HEADACHE
     Dosage: DAILY DOSE: 250 MG MILLIGRAM(S) EVERY DAY
     Route: 048
  3. CAFFEINE. [Suspect]
     Active Substance: CAFFEINE
     Indication: PROPHYLAXIS
     Dosage: UNKNOWN
  4. INDOMETHACIN. [Suspect]
     Active Substance: INDOMETHACIN
     Indication: PROPHYLAXIS
     Dosage: DAILY DOSE: 200 MG MILLIGRAM(S) EVERY DAY
     Route: 048

REACTIONS (3)
  - Drug ineffective [Unknown]
  - Off label use [Unknown]
  - Cognitive disorder [Unknown]
